FAERS Safety Report 6663788-5 (Version None)
Quarter: 2010Q1

REPORT INFORMATION
  Report Type: 
  Country: None (occurrence: None)
  Receive Date: 20100325
  Receipt Date: 20100114
  Transmission Date: 20100710
  Serious: No
  Sender: FDA-Public Use
  Company Number: 2010-00047

PATIENT
  Age: 56 Year
  Sex: Male
  Weight: 68.0396 kg

DRUGS (1)
  1. COLD REMEDY GEL SWABS [Suspect]
     Dosage: QD, 9-10 DAYS; CHRISTMAS TIME

REACTIONS (2)
  - AGEUSIA [None]
  - ANOSMIA [None]
